FAERS Safety Report 22748346 (Version 3)
Quarter: 2024Q2

REPORT INFORMATION
  Report Type: Other
  Country: US (occurrence: None)
  Receive Date: 20230725
  Receipt Date: 20240531
  Transmission Date: 20240716
  Serious: Yes (Other)
  Sender: FDA-Public Use
  Company Number: US-ROCHE-3391519

PATIENT
  Age: 43 Year
  Sex: Male
  Weight: 77.18 kg

DRUGS (6)
  1. OCREVUS [Suspect]
     Active Substance: OCRELIZUMAB
     Indication: Relapsing-remitting multiple sclerosis
     Dosage: LAST DATE OF INFUSION: 09/JUN/2021, DEC/2021, 30/JUN/2021
     Route: 042
     Dates: start: 20180711, end: 20190711
  2. OCREVUS [Suspect]
     Active Substance: OCRELIZUMAB
     Dosage: LAST TREATMENTS 03/JAN/2023, 03/JUL/2023, 09/JUN/2021, 16/DEC/2021
     Route: 042
     Dates: start: 20181106
  3. COPAXONE [Concomitant]
     Active Substance: GLATIRAMER ACETATE
  4. TYSABRI [Concomitant]
     Active Substance: NATALIZUMAB
  5. LORATADINE [Concomitant]
     Active Substance: LORATADINE
  6. FLONASE [Concomitant]
     Active Substance: FLUTICASONE PROPIONATE

REACTIONS (5)
  - Pneumonia [Not Recovered/Not Resolved]
  - COVID-19 [Unknown]
  - Sinusitis [Recovered/Resolved]
  - Pruritus [Recovered/Resolved]
  - Rhinitis allergic [Unknown]

NARRATIVE: CASE EVENT DATE: 20230101
